FAERS Safety Report 9014635 (Version 2)
Quarter: 2013Q1

REPORT INFORMATION
  Report Type: Spontaneous
  Country: CA (occurrence: CA)
  Receive Date: 20130115
  Receipt Date: 20130208
  Transmission Date: 20140127
  Serious: No
  Sender: FDA-Public Use
  Company Number: CA-JNJFOC-20130107267

PATIENT
  Age: 70 Year
  Sex: Male
  Weight: 108.86 kg

DRUGS (10)
  1. NICORETTE QUICK MIST 1MG NICO SPRAY [Suspect]
     Indication: SMOKING CESSATION THERAPY
     Route: 048
     Dates: start: 20130102, end: 20130105
  2. LIPITOR [Concomitant]
     Indication: BLOOD CHOLESTEROL
     Route: 065
  3. ISOSORBIDE-MONONITRATE [Concomitant]
     Indication: ANGINA PECTORIS
     Route: 065
  4. DIAMICRON [Concomitant]
     Indication: DIABETES MELLITUS
     Route: 065
  5. ATACAND PLUS [Concomitant]
     Indication: HYPERTENSION
     Route: 065
  6. METOPROLOL [Concomitant]
     Indication: CARDIAC DISORDER
     Route: 065
  7. METOPROLOL [Concomitant]
     Indication: HYPERTENSION
     Route: 065
  8. NORVASC [Concomitant]
     Indication: ANGINA PECTORIS
     Route: 065
  9. NORVASC [Concomitant]
     Indication: HYPERTENSION
     Route: 065
  10. NITRO SPRAY [Concomitant]
     Indication: ANGINA PECTORIS
     Route: 065

REACTIONS (3)
  - Palpitations [Recovered/Resolved]
  - Myocardial infarction [Recovered/Resolved]
  - Product label issue [Unknown]
